FAERS Safety Report 6253772-8 (Version None)
Quarter: 2009Q2

REPORT INFORMATION
  Report Type: 
  Country: None (occurrence: None)
  Receive Date: 20090630
  Receipt Date: 20090622
  Transmission Date: 20091009
  Serious: Yes (Other)
  Sender: FDA-Public Use
  Company Number: GXKR2009GB07173

PATIENT
  Age: 72 Year
  Sex: Female

DRUGS (9)
  1. SIMVASTATIN [Suspect]
     Indication: BLOOD CHOLESTEROL
     Dosage: 20 MG, ORAL
     Route: 048
     Dates: start: 20090311, end: 20090312
  2. CLARITHROMYCIN [Concomitant]
  3. CODEINE PHOSPHATE AND ACETAMINOPHEN [Concomitant]
  4. FUROSEMIDE [Concomitant]
  5. LEVOTHYROXINE SODIUM [Concomitant]
  6. ACETAMINOPHEN [Concomitant]
  7. SALBUTAMOL (SALBUTAMOL) [Concomitant]
  8. TIOTROPIUM BROMIDE (TIOTROPIUM BROMIDE) [Concomitant]
  9. WARFARIN SODIUM [Concomitant]

REACTIONS (1)
  - GOUT [None]
